FAERS Safety Report 6506658-5 (Version None)
Quarter: 2009Q4

REPORT INFORMATION
  Report Type: 
  Country: None (occurrence: None)
  Receive Date: 20091221
  Receipt Date: 20091209
  Transmission Date: 20100525
  Serious: No
  Sender: FDA-Public Use
  Company Number: US-JNJFOC-20091203710

PATIENT
  Sex: Female
  Weight: 172.82 kg

DRUGS (4)
  1. DURAGESIC-100 [Suspect]
     Indication: OSTEOARTHRITIS
     Route: 062
  2. DURAGESIC-100 [Suspect]
     Route: 062
  3. DURAGESIC-100 [Suspect]
     Route: 062
  4. UNKNOWN MEDICATION [Concomitant]
     Indication: OSTEOARTHRITIS

REACTIONS (2)
  - PRODUCT ADHESION ISSUE [None]
  - WRONG TECHNIQUE IN DRUG USAGE PROCESS [None]
